FAERS Safety Report 8053778-2 (Version None)
Quarter: 2012Q1

REPORT INFORMATION
  Report Type: 
  Country: None (occurrence: None)
  Receive Date: 20120118
  Receipt Date: 20120109
  Transmission Date: 20120608
  Serious: Yes (Other)
  Sender: FDA-Public Use
  Company Number: US-ACTELION-A-US2011-58995

PATIENT

DRUGS (14)
  1. CALCIUM CHANNEL BLOCKERS [Concomitant]
  2. ERGOCALCIFEROL [Concomitant]
  3. FLUTICASONE PROPIONATE [Concomitant]
  4. LOVASTATIN [Concomitant]
  5. NITROGLYCERIN [Concomitant]
  6. FLUCONAZOLE [Concomitant]
  7. LISINOPRIL [Concomitant]
  8. ESOMEPRAZOLE SODIUM [Concomitant]
  9. LOSARTAN POTASSIUM [Concomitant]
  10. TRACLEER [Suspect]
     Indication: PULMONARY ARTERIAL HYPERTENSION
     Dosage: UNK MG, UNK
     Route: 048
     Dates: start: 20051101, end: 20111211
  11. ALBUTEROL [Concomitant]
  12. FERROUS GLUCONATE [Concomitant]
  13. FUROSEMIDE [Concomitant]
  14. TRAMADOL HCL [Concomitant]

REACTIONS (3)
  - HEPATIC STEATOSIS [None]
  - BIOPSY LIVER [None]
  - LIVER SCAN ABNORMAL [None]
